APPROVED DRUG PRODUCT: DOFETILIDE
Active Ingredient: DOFETILIDE
Strength: 0.5MG
Dosage Form/Route: CAPSULE;ORAL
Application: A207058 | Product #003 | TE Code: AB
Applicant: DR REDDYS LABORATORIES SA
Approved: Jun 6, 2016 | RLD: No | RS: No | Type: RX